FAERS Safety Report 6638479-7 (Version None)
Quarter: 2010Q1

REPORT INFORMATION
  Report Type: 
  Country: None (occurrence: None)
  Receive Date: 20100317
  Receipt Date: 20100310
  Transmission Date: 20100710
  Serious: Yes (Other)
  Sender: FDA-Public Use
  Company Number: CA-MERCK-1003USA01748

PATIENT
  Sex: Female

DRUGS (1)
  1. ZETIA [Suspect]
     Route: 048

REACTIONS (5)
  - BLOOD TEST ABNORMAL [None]
  - DIARRHOEA [None]
  - MALAISE [None]
  - PAIN IN EXTREMITY [None]
  - RENAL FAILURE [None]
